FAERS Safety Report 6558586-7 (Version None)
Quarter: 2010Q1

REPORT INFORMATION
  Report Type: 
  Country: None (occurrence: None)
  Receive Date: 20100129
  Receipt Date: 20100126
  Transmission Date: 20100710
  Serious: Yes (Other)
  Sender: FDA-Public Use
  Company Number: BR-PFIZER INC-2010004038

PATIENT
  Age: 73 Year
  Sex: Male

DRUGS (1)
  1. XALATAN [Suspect]
     Indication: GLAUCOMA
     Dosage: 1 GTT IN EACH EYE
     Route: 047
     Dates: start: 20090101

REACTIONS (2)
  - OCULAR HYPERAEMIA [None]
  - VISUAL FIELD DEFECT [None]
